FAERS Safety Report 21119570 (Version 3)
Quarter: 2022Q3

REPORT INFORMATION
  Report Type: Spontaneous
  Country: US (occurrence: US)
  Receive Date: 20220722
  Receipt Date: 20220902
  Transmission Date: 20221027
  Serious: No
  Sender: FDA-Public Use
  Company Number: US-Calliditas-2022CAL00224

PATIENT
  Age: 44 Year
  Sex: Male

DRUGS (14)
  1. TARPEYO [Suspect]
     Active Substance: BUDESONIDE
     Indication: IgA nephropathy
     Dosage: 16 MG (4 MG CAPSULES) DAILY
     Route: 048
     Dates: start: 20220424
  2. SYNTHROID [Concomitant]
     Active Substance: LEVOTHYROXINE SODIUM
  3. PREDNISONE [Concomitant]
     Active Substance: PREDNISONE
  4. KEPPRA [Concomitant]
     Active Substance: LEVETIRACETAM
     Dosage: TIME INTERVAL:
  5. VIMPAT [Concomitant]
     Active Substance: LACOSAMIDE
  6. LOSARTAN [Concomitant]
     Active Substance: LOSARTAN
  7. CHROMIUM [Concomitant]
     Active Substance: CHROMIC CHLORIDE\CHROMIUM
  8. CALCIUM [Concomitant]
     Active Substance: CALCIUM
  9. BIOTIN [Concomitant]
     Active Substance: BIOTIN
  10. MENAQUINONE 6 [Concomitant]
     Active Substance: MENAQUINONE 6
  11. CHOLECALCIFEROL [Concomitant]
     Active Substance: CHOLECALCIFEROL
  12. CINNAMON [CINNAMOMUM BURMANNI;CINNAMOMUM SPP.] [Concomitant]
  13. IODINE [Concomitant]
     Active Substance: IODINE
  14. PEPCID [Concomitant]
     Active Substance: FAMOTIDINE

REACTIONS (3)
  - Increased appetite [Not Recovered/Not Resolved]
  - Gastrooesophageal reflux disease [Unknown]
  - Irritability [Unknown]

NARRATIVE: CASE EVENT DATE: 20220430
